FAERS Safety Report 8717806 (Version 2)
Quarter: 2012Q4

REPORT INFORMATION
  Report Type: Report from Study
  Country: CA (occurrence: CA)
  Receive Date: 20120810
  Receipt Date: 20121026
  Transmission Date: 20130627
  Serious: Yes (Other)
  Sender: FDA-Public Use
  Company Number: CA-ROCHE-1096520

PATIENT
  Age: 64 None
  Sex: Female
  Weight: 83.99 kg

DRUGS (13)
  1. TOCILIZUMAB [Suspect]
     Indication: RHEUMATOID ARTHRITIS
     Route: 042
     Dates: start: 20110718
  2. TOCILIZUMAB [Suspect]
     Route: 042
     Dates: start: 20120509
  3. CALCIUM CARBONATE [Concomitant]
  4. FERROUS FUMARATE [Concomitant]
  5. AMITRIPTYLINE [Concomitant]
  6. PREDNISONE [Concomitant]
  7. RANITIDINE [Concomitant]
  8. MORPHINE [Concomitant]
  9. TYLENOL #3 (CANADA) [Concomitant]
  10. ETIDRONATE [Concomitant]
  11. PREMARIN [Concomitant]
  12. DOCUSATE [Concomitant]
  13. TORADOL [Concomitant]

REACTIONS (5)
  - Herpes zoster [Not Recovered/Not Resolved]
  - Drug effect decreased [Unknown]
  - Immobile [Not Recovered/Not Resolved]
  - Hepatic function abnormal [Not Recovered/Not Resolved]
  - Nasopharyngitis [Not Recovered/Not Resolved]
